FAERS Safety Report 11059927 (Version 4)
Quarter: 2015Q3

REPORT INFORMATION
  Report Type: Spontaneous
  Country: IT (occurrence: IT)
  Receive Date: 20150423
  Receipt Date: 20150831
  Transmission Date: 20151125
  Serious: Yes (Hospitalization)
  Sender: FDA-Public Use
  Company Number: IT-BAYER-2015-137915

PATIENT
  Age: 29 Year
  Sex: Female

DRUGS (14)
  1. DIFLUCAN [Interacting]
     Active Substance: FLUCONAZOLE
     Indication: ORAL CANDIDIASIS
     Dosage: DAILY DOSE 100 MG
     Route: 048
     Dates: start: 20130829, end: 20130904
  2. TAVOR [LORAZEPAM] [Concomitant]
     Active Substance: LORAZEPAM
     Dosage: DAILY DOSE 10 MG (50GTT), 2 MG/ML
     Route: 048
     Dates: start: 20130909, end: 20131009
  3. HALOPERIDOL. [Concomitant]
     Active Substance: HALOPERIDOL
     Indication: SCHIZOAFFECTIVE DISORDER
     Dosage: DAILY DOSE 2 MG
     Dates: end: 20130804
  4. LEPONEX [Interacting]
     Active Substance: CLOZAPINE
     Indication: PSYCHOTIC DISORDER
     Dosage: GRADUALLY INCREASED, WITHIN 16 DAYS TO 225MG PER DAY
     Route: 048
     Dates: end: 20130918
  5. OLANZAPINE. [Concomitant]
     Active Substance: OLANZAPINE
     Indication: SCHIZOAFFECTIVE DISORDER
     Dosage: DAILY DOSE 10 MG
     Dates: end: 20130804
  6. YASMIN [Suspect]
     Active Substance: DROSPIRENONE\ETHINYL ESTRADIOL
     Indication: OVARIAN CYST
     Dosage: DAILY DOSE 1 DF
     Route: 048
     Dates: start: 20130807, end: 20130925
  7. DAKTARIN [Interacting]
     Active Substance: MICONAZOLE NITRATE
     Indication: ORAL CANDIDIASIS
     Dosage: 20 MG, BID
     Route: 048
     Dates: start: 20130829, end: 20130904
  8. OLANZAPINE. [Concomitant]
     Active Substance: OLANZAPINE
     Indication: SCHIZOAFFECTIVE DISORDER
     Dosage: DAILY DOSE 20 MG
     Route: 048
     Dates: start: 20130805, end: 20130828
  9. DELORAZEPAM [Concomitant]
     Active Substance: DELORAZEPAM
     Dosage: DAILY DOSE 5 MG
     Route: 042
     Dates: start: 20130909, end: 20131009
  10. ARIPIPRAZOLE. [Concomitant]
     Active Substance: ARIPIPRAZOLE
     Indication: SCHIZOAFFECTIVE DISORDER
     Dosage: DAILY DOSE 30 MG
     Route: 048
     Dates: start: 20130829, end: 20130903
  11. LEPONEX [Interacting]
     Active Substance: CLOZAPINE
     Indication: PSYCHOTIC DISORDER
     Dosage: DAILY DOSE 25 MG
     Route: 048
     Dates: start: 20130904
  12. HALOPERIDOL. [Concomitant]
     Active Substance: HALOPERIDOL
     Indication: SCHIZOAFFECTIVE DISORDER
     Dosage: DAILY DOSE 9 MG
     Route: 048
     Dates: start: 20130805, end: 20130828
  13. YASMIN [Interacting]
     Active Substance: DROSPIRENONE\ETHINYL ESTRADIOL
     Indication: ORAL CONTRACEPTION
  14. LEPONEX [Interacting]
     Active Substance: CLOZAPINE
     Indication: PSYCHOTIC DISORDER
     Dosage: 225MG PER DAY
     Route: 048
     Dates: start: 20130919, end: 20131003

REACTIONS (15)
  - Pericardial effusion [Recovered/Resolved]
  - Drug effect increased [Recovered/Resolved]
  - C-reactive protein increased [Recovered/Resolved]
  - Sinus tachycardia [Recovered/Resolved]
  - Pericarditis [Recovered/Resolved]
  - Vomiting [Recovered/Resolved]
  - Electrocardiogram ST segment depression [Recovered/Resolved]
  - Nausea [Recovered/Resolved]
  - Antipsychotic drug level increased [Recovered/Resolved]
  - Eosinophilia [None]
  - Toxicity to various agents [Recovered/Resolved]
  - Electrocardiogram QT prolonged [Recovered/Resolved]
  - Drug interaction [None]
  - Heart sounds abnormal [Recovered/Resolved]
  - Electrocardiogram T wave inversion [Recovered/Resolved]

NARRATIVE: CASE EVENT DATE: 20130924
